FAERS Safety Report 15030280 (Version 2)
Quarter: 2018Q3

REPORT INFORMATION
  Report Type: Spontaneous
  Country: US (occurrence: US)
  Receive Date: 20180619
  Receipt Date: 20180710
  Transmission Date: 20181010
  Serious: No
  Sender: FDA-Public Use
  Company Number: US-PFIZER INC-2018247750

PATIENT
  Age: 61 Year
  Sex: Female

DRUGS (3)
  1. COSENTYX [Suspect]
     Active Substance: SECUKINUMAB
     Dosage: UNK
  2. SULFASALAZINE. [Suspect]
     Active Substance: SULFASALAZINE
     Dosage: UNK
  3. SIMPONI [Suspect]
     Active Substance: GOLIMUMAB
     Dosage: UNK

REACTIONS (1)
  - Treatment failure [Unknown]
